FAERS Safety Report 5737493-3 (Version None)
Quarter: 2008Q2

REPORT INFORMATION
  Report Type: 
  Country: None (occurrence: None)
  Receive Date: 20080514
  Receipt Date: 20080507
  Transmission Date: 20081010
  Serious: Yes (Other)
  Sender: FDA-Public Use
  Company Number: NL-TEVA-171441ISR

PATIENT
  Age: 53 Year
  Sex: Male

DRUGS (4)
  1. BACLOFEN [Suspect]
     Indication: MUSCLE SPASMS
     Route: 048
  2. BACLOFEN [Suspect]
     Route: 048
  3. BACLOFEN [Suspect]
  4. BACLOFEN [Suspect]
     Route: 037

REACTIONS (6)
  - BRADYCARDIA [None]
  - DELIRIUM [None]
  - HYPERVENTILATION [None]
  - HYPOTENSION [None]
  - OXYGEN SATURATION DECREASED [None]
  - RESPIRATORY FAILURE [None]
